FAERS Safety Report 5726576-X (Version None)
Quarter: 2008Q2

REPORT INFORMATION
  Report Type: 
  Country: None (occurrence: None)
  Receive Date: 20080502
  Receipt Date: 20080425
  Transmission Date: 20081010
  Serious: Yes (Hospitalization, Disabling)
  Sender: FDA-Public Use
  Company Number: JP-ASTRAZENECA-2008AP03134

PATIENT
  Age: 52 Year
  Sex: Male

DRUGS (1)
  1. NAROPIN [Suspect]
     Indication: SEDATION
     Route: 008
     Dates: start: 20080421, end: 20080422

REACTIONS (2)
  - DYSAESTHESIA [None]
  - MOVEMENT DISORDER [None]
